FAERS Safety Report 6773083-1 (Version None)
Quarter: 2010Q2

REPORT INFORMATION
  Report Type: 
  Country: None (occurrence: None)
  Receive Date: 20100616
  Receipt Date: 20100602
  Transmission Date: 20101027
  Serious: Yes (Hospitalization)
  Sender: FDA-Public Use
  Company Number: US-ELI_LILLY_AND_COMPANY-US201006001381

PATIENT
  Sex: Female

DRUGS (3)
  1. FORTEO [Suspect]
     Indication: OSTEOPOROSIS
     Dosage: 20 UG, DAILY (1/D)
     Dates: start: 20100505, end: 20100519
  2. BENICAR [Concomitant]
     Dosage: 40 MG, DAILY (1/D)
  3. ISOSORBIDE MONONITRATE [Concomitant]
     Dosage: 30 MG, DAILY (1/D)

REACTIONS (14)
  - BALANCE DISORDER [None]
  - BLOOD PRESSURE INCREASED [None]
  - CARDIAC FAILURE CONGESTIVE [None]
  - DEPRESSED MOOD [None]
  - DIZZINESS [None]
  - FATIGUE [None]
  - GAIT DISTURBANCE [None]
  - LOOSE TOOTH [None]
  - MALAISE [None]
  - MUSCULAR WEAKNESS [None]
  - NAUSEA [None]
  - TOOTHACHE [None]
  - VISUAL IMPAIRMENT [None]
  - VOMITING [None]
